FAERS Safety Report 11338127 (Version 2)
Quarter: 2015Q3

REPORT INFORMATION
  Report Type: Spontaneous
  Country: US (occurrence: US)
  Receive Date: 20150803
  Receipt Date: 20150803
  Transmission Date: 20151125
  Serious: No
  Sender: FDA-Public Use
  Company Number: US-ELI_LILLY_AND_COMPANY-US201004008483

PATIENT
  Age: 19 Year
  Sex: Female

DRUGS (3)
  1. TRILAFON [Concomitant]
     Active Substance: PERPHENAZINE
  2. ZYPREXA [Suspect]
     Active Substance: OLANZAPINE
     Dosage: 20 MG, UNK
  3. STRATTERA [Suspect]
     Active Substance: ATOMOXETINE HYDROCHLORIDE
     Indication: ATTENTION DEFICIT/HYPERACTIVITY DISORDER
     Dosage: 80 MG, UNK

REACTIONS (2)
  - Drug ineffective [Unknown]
  - Psychotic disorder [Unknown]
